FAERS Safety Report 7025071-8 (Version None)
Quarter: 2010Q4

REPORT INFORMATION
  Report Type: 
  Country: None (occurrence: None)
  Receive Date: 20101001
  Receipt Date: 20100922
  Transmission Date: 20110411
  Serious: Yes (Hospitalization)
  Sender: FDA-Public Use
  Company Number: DE-ABBOTT-10P-062-0669190-00

PATIENT
  Sex: Male
  Weight: 100 kg

DRUGS (11)
  1. HUMIRA [Suspect]
     Indication: PSORIATIC ARTHROPATHY
     Route: 058
     Dates: start: 20100112, end: 20100609
  2. HUMIRA [Suspect]
     Dosage: 40MG ONCE
     Route: 058
     Dates: start: 20100917, end: 20100917
  3. ARAVA [Concomitant]
     Indication: PSORIATIC ARTHROPATHY
     Route: 048
  4. PREDNISOLONE [Concomitant]
     Indication: PSORIATIC ARTHROPATHY
     Dosage: 5MG DAILY
     Route: 048
  5. LEFLUNOMIDE [Concomitant]
     Indication: PSORIATIC ARTHROPATHY
     Dosage: 10MG DAILY
     Route: 048
     Dates: start: 19980101, end: 20100608
  6. IBUPROFEN [Concomitant]
     Indication: PSORIATIC ARTHROPATHY
     Dosage: 400MG AS NEEDED
     Dates: end: 20100601
  7. NEXIUM [Concomitant]
     Indication: GASTRIC DISORDER
     Dosage: 20MG OD
     Route: 048
  8. NEXIUM [Concomitant]
     Indication: PROPHYLAXIS
  9. NOVALGIN [Concomitant]
     Indication: PAIN
     Route: 048
  10. KAMILLOSAN [Concomitant]
     Indication: PRODUCT USED FOR UNKNOWN INDICATION
     Dosage: TO WASH MOUTH AND THROAT AS NEEDED
  11. LYRICA [Concomitant]
     Indication: PRODUCT USED FOR UNKNOWN INDICATION
     Dates: start: 20100801

REACTIONS (3)
  - COLITIS COLLAGENOUS [None]
  - DIARRHOEA [None]
  - WEIGHT DECREASED [None]
